FAERS Safety Report 4543221-X (Version None)
Quarter: 2005Q1

REPORT INFORMATION
  Report Type: 
  Country: None (occurrence: None)
  Receive Date: 20050103
  Receipt Date: 20041221
  Transmission Date: 20050727
  Serious: Yes (Hospitalization)
  Sender: FDA-Public Use
  Company Number: US-BRISTOL-MYERS SQUIBB COMPANY-12802716

PATIENT
  Age: 68 Year
  Sex: Male
  Weight: 79 kg

DRUGS (13)
  1. TAXOL [Suspect]
     Indication: METASTATIC CARCINOMA OF THE BLADDER
     Route: 042
     Dates: start: 20041208, end: 20041208
  2. GLYBURIDE [Concomitant]
  3. METFORMIN HCL [Concomitant]
  4. GEMFIBROZIL [Concomitant]
  5. AVAPRO [Concomitant]
  6. ASPIRIN [Concomitant]
  7. TOPROL-XL [Concomitant]
  8. DITROPAN XL [Concomitant]
  9. PROTONIX [Concomitant]
  10. ZOFRAN [Concomitant]
     Indication: PREMEDICATION
     Route: 048
  11. DECADRON [Concomitant]
     Indication: PREMEDICATION
     Route: 042
  12. BENADRYL [Concomitant]
     Indication: PREMEDICATION
     Route: 042
  13. PEPCID [Concomitant]
     Indication: PREMEDICATION
     Route: 042

REACTIONS (4)
  - ACIDOSIS [None]
  - NAUSEA [None]
  - RENAL FAILURE [None]
  - VOMITING [None]
